FAERS Safety Report 20506672 (Version 1)
Quarter: 2022Q1

REPORT INFORMATION
  Report Type: Spontaneous
  Country: PR (occurrence: None)
  Receive Date: 20220222
  Receipt Date: 20220222
  Transmission Date: 20220423
  Serious: Yes (Hospitalization, Disabling)
  Sender: FDA-Public Use
  Company Number: None

PATIENT
  Age: 25 Year
  Sex: Male
  Weight: 85.5 kg

DRUGS (2)
  1. TYLENOL [Suspect]
     Active Substance: ACETAMINOPHEN
     Indication: Sexual dysfunction
  2. RISPERIDONE [Concomitant]

REACTIONS (3)
  - Hallucination [None]
  - Libido increased [None]
  - Schizophrenia [None]

NARRATIVE: CASE EVENT DATE: 20150201
